FAERS Safety Report 19882902 (Version 1)
Quarter: 2021Q3

REPORT INFORMATION
  Report Type: Spontaneous
  Country: US (occurrence: US)
  Receive Date: 20210924
  Receipt Date: 20210924
  Transmission Date: 20211014
  Serious: No
  Sender: FDA-Public Use
  Company Number: US-SA-2021SA315440

PATIENT
  Sex: Female

DRUGS (1)
  1. DUPIXENT [Suspect]
     Active Substance: DUPILUMAB
     Indication: DERMATITIS ATOPIC
     Dosage: 300MG/2ML, 300 MG
     Route: 058

REACTIONS (4)
  - Eye irritation [Unknown]
  - Condition aggravated [Unknown]
  - Dry eye [Unknown]
  - Eye pruritus [Unknown]
